FAERS Safety Report 24352485 (Version 1)
Quarter: 2024Q3

REPORT INFORMATION
  Report Type: Spontaneous
  Country: US (occurrence: None)
  Receive Date: 20240922
  Receipt Date: 20240922
  Transmission Date: 20241017
  Serious: Yes (Disabling, Other)
  Sender: Public
  Company Number: None

PATIENT
  Age: 33 Year
  Sex: Male
  Weight: 74.25 kg

DRUGS (4)
  1. DULOXETINE HYDROCHLORIDE [Suspect]
     Active Substance: DULOXETINE HYDROCHLORIDE
     Indication: Anxiety
     Dosage: 1 CAPSULE ORAL
     Route: 048
     Dates: start: 20240701
  2. DULOXETINE HYDROCHLORIDE [Suspect]
     Active Substance: DULOXETINE HYDROCHLORIDE
     Indication: Depression
  3. ADDERALL [Concomitant]
     Active Substance: AMPHETAMINE ASPARTATE\AMPHETAMINE SULFATE\DEXTROAMPHETAMINE SACCHARATE\DEXTROAMPHETAMINE SULFATE
  4. CPAP MACHINE [Concomitant]

REACTIONS (3)
  - Anorgasmia [None]
  - Erectile dysfunction [None]
  - Libido decreased [None]

NARRATIVE: CASE EVENT DATE: 20240915
